FAERS Safety Report 5074865-7 (Version None)
Quarter: 2006Q3

REPORT INFORMATION
  Report Type: 
  Country: None (occurrence: None)
  Receive Date: 20060804
  Receipt Date: 20060724
  Transmission Date: 20061208
  Serious: Yes (Hospitalization, Other)
  Sender: FDA-Public Use
  Company Number: 2006AP000558

PATIENT
  Age: 57 Year
  Sex: Male

DRUGS (4)
  1. SELEGILINE HCL [Suspect]
     Indication: PARKINSON'S DISEASE
     Dosage: 5 MG; BID; PO
     Route: 048
     Dates: start: 20000101, end: 20060614
  2. COMTAN [Suspect]
     Indication: PARKINSON'S DISEASE
     Dosage: PO
     Route: 048
     Dates: start: 20060101, end: 20060614
  3. CARBIDOPA [Concomitant]
  4. LEVODOPA [Concomitant]

REACTIONS (2)
  - DRUG EFFECT DECREASED [None]
  - EOSINOPHILIC PNEUMONIA [None]
